FAERS Safety Report 8097157-0 (Version None)
Quarter: 2012Q1

REPORT INFORMATION
  Report Type: 
  Country: None (occurrence: None)
  Receive Date: 20120128
  Receipt Date: 20110705
  Transmission Date: 20120608
  Serious: No
  Sender: FDA-Public Use
  Company Number: US-ABBOTT-11P-163-0836782-00

PATIENT
  Sex: Male
  Weight: 99.88 kg

DRUGS (10)
  1. NABUMETONE [Concomitant]
     Indication: PSORIATIC ARTHROPATHY
  2. METFORMIN HCL [Concomitant]
     Indication: DIABETES MELLITUS
  3. TIZANIDINE HCL [Concomitant]
     Indication: MULTIPLE SCLEROSIS
  4. NABUMETONE [Concomitant]
     Indication: OSTEOARTHRITIS
  5. HUMIRA [Suspect]
     Indication: PSORIASIS
     Route: 058
     Dates: start: 20110201
  6. SIMVASTATIN [Concomitant]
     Indication: BLOOD CHOLESTEROL INCREASED
  7. HUMIRA [Suspect]
     Indication: PSORIATIC ARTHROPATHY
  8. SULFAZINE [Concomitant]
     Indication: ARTHRITIS
  9. BENAZEPRIL HYDROCHLORIDE [Concomitant]
     Indication: HYPERTENSION
  10. ASPIRIN [Concomitant]
     Indication: CARDIAC DISORDER

REACTIONS (4)
  - PAPULE [None]
  - PRURITUS GENERALISED [None]
  - URTICARIA [None]
  - WOUND SECRETION [None]
